FAERS Safety Report 6087421-9 (Version None)
Quarter: 2009Q1

REPORT INFORMATION
  Report Type: 
  Country: None (occurrence: None)
  Receive Date: 20090223
  Receipt Date: 20090209
  Transmission Date: 20090719
  Serious: Yes (Hospitalization)
  Sender: FDA-Public Use
  Company Number: US-MERCK-0902USA03399

PATIENT
  Age: 71 Year
  Sex: Female

DRUGS (3)
  1. PRINIVIL [Suspect]
     Indication: HYPERTENSION
     Route: 048
     Dates: end: 20060301
  2. CLONIDINE [Suspect]
     Indication: HYPERTENSION
     Route: 065
     Dates: end: 20060301
  3. ISOSORBIDE [Suspect]
     Indication: HYPERTENSION
     Route: 065
     Dates: end: 20060301

REACTIONS (2)
  - ADRENAL DISORDER [None]
  - HYPOTENSION [None]
